FAERS Safety Report 10882816 (Version 1)
Quarter: 2015Q1

REPORT INFORMATION
  Report Type: Spontaneous
  Country: NL (occurrence: NL)
  Receive Date: 20150303
  Receipt Date: 20150303
  Transmission Date: 20150721
  Serious: Yes (Death)
  Sender: FDA-Public Use
  Company Number: NL-CELGENE-114-50794-11031550

PATIENT

DRUGS (1)
  1. VIDAZA [Suspect]
     Active Substance: AZACITIDINE
     Indication: MYELODYSPLASTIC SYNDROME
     Dosage: 75 MILLIGRAM/SQ. METER
     Route: 058

REACTIONS (5)
  - Death [Fatal]
  - Neoplasm malignant [Fatal]
  - Haematotoxicity [Unknown]
  - Myelodysplastic syndrome [Fatal]
  - Toxicity to various agents [Unknown]
